FAERS Safety Report 4323095-2 (Version None)
Quarter: 2004Q1

REPORT INFORMATION
  Report Type: 
  Country: None (occurrence: None)
  Receive Date: 20040322
  Receipt Date: 20040304
  Transmission Date: 20041129
  Serious: Yes (Hospitalization)
  Sender: FDA-Public Use
  Company Number: 168346

PATIENT
  Age: 55 Year
  Sex: Male
  Weight: 136.0791 kg

DRUGS (11)
  1. AVONEX [Suspect]
     Indication: MULTIPLE SCLEROSIS
     Dosage: 30 MCG QW IM
     Route: 030
     Dates: start: 20010101, end: 20021221
  2. LOSARTAN POTASSIUM W/HYDROCHLOROTHIAZIDE [Concomitant]
  3. FUROSEMIDE [Concomitant]
  4. BACLOFEN [Concomitant]
  5. TOPROL-XL [Concomitant]
  6. WARFARIN SODIUM [Concomitant]
  7. EFFEXOR XR [Concomitant]
  8. PROVIGIL [Concomitant]
  9. CARDURA [Concomitant]
  10. TRENTAL ^ALBERT-ROUSSEL^ [Concomitant]
  11. NORVASC [Concomitant]

REACTIONS (5)
  - ATRIAL FIBRILLATION [None]
  - CONDITION AGGRAVATED [None]
  - MULTIPLE SCLEROSIS [None]
  - OEDEMA PERIPHERAL [None]
  - PYREXIA [None]
